FAERS Safety Report 7874601-2 (Version None)
Quarter: 2011Q4

REPORT INFORMATION
  Report Type: 
  Country: None (occurrence: None)
  Receive Date: 20111031
  Receipt Date: 20111028
  Transmission Date: 20120403
  Serious: Yes (Hospitalization, Other)
  Sender: FDA-Public Use
  Company Number: US-PFIZER INC-2011264650

PATIENT
  Sex: Female
  Weight: 71.7 kg

DRUGS (2)
  1. DILANTIN [Suspect]
     Dosage: 100 MG, 4X/DAY
     Route: 048
     Dates: start: 20111001
  2. DILANTIN [Suspect]
     Indication: CONVULSION
     Dosage: 100 MG, 4X/DAY
     Route: 048
     Dates: start: 19780101, end: 20110501

REACTIONS (2)
  - CHRONIC OBSTRUCTIVE PULMONARY DISEASE [None]
  - CONVULSION [None]
